FAERS Safety Report 8185296 (Version 2)
Quarter: 2014Q2

REPORT INFORMATION
  Report Type: Spontaneous
  Country: US (occurrence: US)
  Receive Date: 20111018
  Receipt Date: 20140625
  Transmission Date: 20141212
  Serious: No
  Sender: FDA-Public Use
  Company Number: US-ASTRAZENECA-2011SE37816

PATIENT
  Age: 44 Year
  Sex: Female
  Weight: 49.9 kg

DRUGS (4)
  1. SYMBICORT [Suspect]
     Indication: ASTHMA
     Dosage: 80/4.5 MCG
     Route: 055
  2. SYMBICORT [Suspect]
     Indication: ASTHMA
     Dosage: 160/4.5 MCG 2 PUFFS TWICE DAILY
     Route: 055
     Dates: start: 2010
  3. SYMBICORT [Suspect]
     Indication: ASTHMA
     Dosage: 320MCG UNKNOWN FREQUENCY
     Route: 055
     Dates: start: 2011
  4. SYNTHROID [Concomitant]
     Dosage: GENERIC

REACTIONS (3)
  - Alopecia [Unknown]
  - Hypothyroidism [Unknown]
  - Off label use [Unknown]
